FAERS Safety Report 6760675-9 (Version None)
Quarter: 2010Q2

REPORT INFORMATION
  Report Type: 
  Country: None (occurrence: None)
  Receive Date: 20100608
  Receipt Date: 20100527
  Transmission Date: 20101027
  Serious: Yes (Death)
  Sender: FDA-Public Use
  Company Number: JP-PFIZER INC-2010067757

PATIENT
  Age: 85 Year
  Sex: Male

DRUGS (4)
  1. ZYVOX [Suspect]
     Dosage: UNK
     Route: 041
     Dates: start: 20100521, end: 20100525
  2. MICAFUNGIN [Concomitant]
  3. VANCOMYCIN [Concomitant]
     Dosage: UNK
     Dates: start: 20100514
  4. PRODIF [Concomitant]

REACTIONS (1)
  - PLATELET COUNT DECREASED [None]
